FAERS Safety Report 7887794-8 (Version None)
Quarter: 2011Q4

REPORT INFORMATION
  Report Type: 
  Country: None (occurrence: None)
  Receive Date: 20111103
  Receipt Date: 20111025
  Transmission Date: 20120403
  Serious: Yes (Other)
  Sender: FDA-Public Use
  Company Number: US-JNJFOC-20111011274

PATIENT
  Sex: Male
  Weight: 63.5 kg

DRUGS (3)
  1. REMICADE [Suspect]
     Route: 042
  2. REMICADE [Suspect]
     Indication: CROHN'S DISEASE
     Route: 042
     Dates: end: 20090101
  3. REMICADE [Suspect]
     Route: 042
     Dates: start: 20040401

REACTIONS (5)
  - WEIGHT DECREASED [None]
  - DIARRHOEA [None]
  - PYREXIA [None]
  - CROHN'S DISEASE [None]
  - NIGHT SWEATS [None]
